FAERS Safety Report 8239420-6 (Version None)
Quarter: 2012Q1

REPORT INFORMATION
  Report Type: 
  Country: None (occurrence: None)
  Receive Date: 20120328
  Receipt Date: 20120316
  Transmission Date: 20120608
  Serious: Yes (Hospitalization, Other)
  Sender: FDA-Public Use
  Company Number: ES-JNJFOC-20040306039

PATIENT
  Age: 73 Year
  Sex: Female

DRUGS (9)
  1. METHOTREXATE [Concomitant]
  2. BIPHOSPHONATE [Concomitant]
  3. FOLIC ACID [Concomitant]
  4. CORTICOSTEROID NOS [Concomitant]
  5. ACFOL [Concomitant]
  6. DIURETIC NOS [Concomitant]
  7. REMICADE [Suspect]
     Indication: RHEUMATOID ARTHRITIS
     Route: 042
     Dates: start: 20000322, end: 20030220
  8. OMEPRAZOLE [Concomitant]
  9. NONSTEROIDAL ANTI-INFLAMMATORY AGENT NOS [Concomitant]

REACTIONS (1)
  - BONE TUBERCULOSIS [None]
